FAERS Safety Report 7245706-4 (Version None)
Quarter: 2011Q1

REPORT INFORMATION
  Report Type: 
  Country: None (occurrence: None)
  Receive Date: 20110126
  Receipt Date: 20110120
  Transmission Date: 20110831
  Serious: Yes (Hospitalization)
  Sender: FDA-Public Use
  Company Number: SE-ABBOTT-11P-150-0700006-00

PATIENT
  Sex: Female

DRUGS (12)
  1. BETAPRED [Concomitant]
     Indication: PRODUCT USED FOR UNKNOWN INDICATION
     Dates: start: 20110120, end: 20110120
  2. SEVOFLURANE [Suspect]
     Indication: TONSILLECTOMY
     Dosage: 2,3 VOL %
     Route: 055
     Dates: start: 20110120, end: 20110120
  3. XYLOCAINE [Concomitant]
     Indication: LOCAL ANAESTHESIA
     Dates: start: 20110120, end: 20110120
  4. ATROPIN [Concomitant]
     Indication: PRODUCT USED FOR UNKNOWN INDICATION
     Dates: start: 20110120, end: 20110120
  5. PERFALGAN [Concomitant]
     Indication: PRODUCT USED FOR UNKNOWN INDICATION
     Dates: start: 20110120, end: 20110120
  6. NITROUS OXIDE [Concomitant]
     Indication: PRODUCT USED FOR UNKNOWN INDICATION
     Dosage: 0 MIN: 4 L/MIN, 15 MIN: 0.6 L.MIN 30 MIN: 0.6 L/MIN  15 MIN: 0,6 L/MIN   30 MIN: 0,6 L/MIN
     Route: 055
     Dates: start: 20110120, end: 20110120
  7. KETOGAN [Concomitant]
     Indication: ANALGESIC THERAPY
     Dosage: 1 MG + 1 MG + 1 MG + 1 MG
     Dates: start: 20110120, end: 20110120
  8. PRIMPERAN TAB [Concomitant]
     Indication: PRODUCT USED FOR UNKNOWN INDICATION
     Dates: start: 20110120, end: 20110120
  9. OXYGEN [Concomitant]
     Indication: PRODUCT USED FOR UNKNOWN INDICATION
     Dosage: 0 MIN: 2 L/MIN 15 MIN: 0.5 L/MIN 30 MIN: 3 L/MIN
     Route: 055
     Dates: start: 20110120, end: 20110120
  10. PROPOFOL [Concomitant]
     Indication: ANAESTHESIA
     Dosage: 20 MG + 20 MG
     Dates: start: 20110120, end: 20110120
  11. RAPIFEN [Concomitant]
     Indication: PRODUCT USED FOR UNKNOWN INDICATION
     Dates: start: 20110120, end: 20110120
  12. TORADAL [Concomitant]
     Indication: POSTOPERATIVE ANALGESIA
     Route: 042
     Dates: start: 20110120

REACTIONS (3)
  - FLUID INTAKE REDUCED [None]
  - PROCEDURAL NAUSEA [None]
  - PROCEDURAL VOMITING [None]
